FAERS Safety Report 24431540 (Version 1)
Quarter: 2024Q4

REPORT INFORMATION
  Report Type: Spontaneous
  Country: US (occurrence: US)
  Receive Date: 20241014
  Receipt Date: 20241014
  Transmission Date: 20250114
  Serious: Yes (Hospitalization, Other)
  Sender: NOVO NORDISK
  Company Number: US-NOVOPROD-1296046

PATIENT
  Age: 87 Year
  Sex: Female

DRUGS (2)
  1. NOVOLOG [Suspect]
     Active Substance: INSULIN ASPART
     Indication: Type 2 diabetes mellitus
     Dosage: DOSED ON A SLIDING SCALES
     Route: 058
     Dates: end: 20241001
  2. LANTUS [Concomitant]
     Active Substance: INSULIN GLARGINE
     Indication: Product used for unknown indication
     Dosage: UNK

REACTIONS (8)
  - Cataract operation [Unknown]
  - Vascular graft [Unknown]
  - Stent placement [Recovered/Resolved]
  - Cardiac pacemaker insertion [Unknown]
  - Colon cancer [Recovered/Resolved]
  - Breast cancer [Recovered/Resolved]
  - Eye disorder [Unknown]
  - Syncope [Unknown]

NARRATIVE: CASE EVENT DATE: 20010101
